FAERS Safety Report 5760641-6 (Version None)
Quarter: 2008Q2

REPORT INFORMATION
  Report Type: 
  Country: None (occurrence: None)
  Receive Date: 20080602
  Receipt Date: 20080519
  Transmission Date: 20081010
  Serious: Yes (Other)
  Sender: FDA-Public Use
  Company Number: US023575

PATIENT
  Sex: Male

DRUGS (1)
  1. PROVIGIL [Suspect]
     Indication: NARCOLEPSY
     Dosage: 400 MG QD ORAL
     Route: 048
     Dates: start: 20060101, end: 20080101

REACTIONS (1)
  - MYOCARDIAL INFARCTION [None]
